FAERS Safety Report 11885345 (Version 4)
Quarter: 2016Q1

REPORT INFORMATION
  Report Type: Spontaneous
  Country: TN (occurrence: TN)
  Receive Date: 20160104
  Receipt Date: 20160317
  Transmission Date: 20160526
  Serious: Yes (Other)
  Sender: FDA-Public Use
  Company Number: TN-BAUSCH-BL-2015-030987

PATIENT
  Age: 6 Year
  Sex: Male

DRUGS (1)
  1. METRONIDAZOLE. [Suspect]
     Active Substance: METRONIDAZOLE
     Indication: AMOEBIC DYSENTERY
     Route: 048

REACTIONS (2)
  - Optic neuropathy [Recovering/Resolving]
  - Blindness [Recovering/Resolving]
